FAERS Safety Report 4853906-3 (Version None)
Quarter: 2005Q4

REPORT INFORMATION
  Report Type: 
  Country: None (occurrence: None)
  Receive Date: 20051214
  Receipt Date: 20051005
  Transmission Date: 20060501
  Serious: Yes (Hospitalization, Other)
  Sender: FDA-Public Use
  Company Number: US-MERCK-0510USA04056

PATIENT
  Age: 44 Year
  Sex: Female
  Weight: 48 kg

DRUGS (37)
  1. VIOXX [Suspect]
     Indication: ARTHRITIS
     Route: 048
     Dates: start: 19950101, end: 20040901
  2. PREDNISONE [Concomitant]
     Route: 065
  3. PLAQUENIL [Concomitant]
     Route: 065
  4. [THERAPY UNSPECIFIED] [Concomitant]
     Route: 065
  5. AMBIEN [Concomitant]
     Route: 065
  6. PREMPHASE 14/14 [Concomitant]
     Route: 065
  7. AMANTADINE HYDROCHLORIDE [Concomitant]
     Route: 065
  8. PROTONIX [Concomitant]
     Route: 065
  9. PROZAC [Concomitant]
     Route: 065
  10. CLONAZEPAM [Concomitant]
     Route: 065
  11. SINGULAIR [Concomitant]
     Route: 065
  12. ENTOCORT [Concomitant]
     Route: 065
  13. AMITRIPTYLINE HYDROCHLORIDE [Concomitant]
     Route: 065
  14. PENTASA [Concomitant]
     Route: 065
  15. VOLTAREN [Concomitant]
     Route: 065
  16. LIPITOR [Concomitant]
     Route: 065
  17. PLAVIX [Concomitant]
     Route: 065
  18. DETROL [Concomitant]
     Route: 065
  19. SOMA [Concomitant]
     Route: 065
  20. REMERON [Concomitant]
     Route: 065
  21. REGLAN [Concomitant]
     Route: 065
  22. CALCIUM (UNSPECIFIED) [Concomitant]
     Route: 065
  23. ZINC (UNSPECIFIED) [Concomitant]
     Route: 065
  24. FOLIC ACID [Concomitant]
     Route: 065
  25. ASPIRIN [Concomitant]
     Route: 065
  26. COUGH, COLD, AND FLU THERAPIES (UNSPECIFIED) [Concomitant]
     Route: 065
  27. [THERAPY UNSPECIFIED] [Concomitant]
     Indication: HYPERSENSITIVITY
     Route: 065
  28. IRON (UNSPECIFIED) [Concomitant]
     Route: 065
  29. BENTYL [Concomitant]
     Route: 065
  30. NEXIUM [Concomitant]
     Route: 065
  31. CELEBREX [Concomitant]
     Route: 065
  32. VALTREX [Concomitant]
     Route: 065
  33. VALIUM [Concomitant]
     Route: 065
  34. PERCOCET [Concomitant]
     Route: 065
  35. DURAGESIC-100 [Concomitant]
     Route: 065
  36. FLONASE [Concomitant]
     Route: 065
  37. PULMICORT [Concomitant]
     Route: 065

REACTIONS (10)
  - ANAEMIA [None]
  - ARTHROPATHY [None]
  - CARDIAC DISORDER [None]
  - CHEST PAIN [None]
  - CORONARY ARTERY DISEASE [None]
  - DYSPNOEA [None]
  - GASTROOESOPHAGEAL REFLUX DISEASE [None]
  - MITRAL VALVE INCOMPETENCE [None]
  - MYOCARDIAL ISCHAEMIA [None]
  - PERICARDIAL EFFUSION [None]
